FAERS Safety Report 7612285-9 (Version None)
Quarter: 2011Q3

REPORT INFORMATION
  Report Type: 
  Country: None (occurrence: None)
  Receive Date: 20110715
  Receipt Date: 20110706
  Transmission Date: 20111222
  Serious: Yes (Life-Threatening, Hospitalization, Other)
  Sender: FDA-Public Use
  Company Number: US-MERCK-1106USA01320

PATIENT
  Age: 85 Year
  Sex: Male

DRUGS (5)
  1. PANTOPRAZOLE [Concomitant]
     Indication: ULCER
     Route: 048
     Dates: start: 20110603
  2. PLAVIX [Concomitant]
     Indication: CEREBROVASCULAR ACCIDENT
     Route: 048
     Dates: start: 20101207
  3. VYTORIN [Suspect]
     Indication: CORONARY ARTERY DISEASE
     Dosage: 1 STANDARD PACKAGE BOTTLE OF 30
     Route: 048
     Dates: start: 20060925, end: 20110524
  4. BICALUTAMIDE [Concomitant]
     Indication: PROSTATE CANCER
     Route: 048
     Dates: start: 20110126
  5. HYDROCODONE BITARTRATE AND ACETAMINOPHEN [Concomitant]
     Indication: BACK PAIN
     Route: 048
     Dates: start: 20060926

REACTIONS (4)
  - DEHYDRATION [None]
  - WRONG TECHNIQUE IN DRUG USAGE PROCESS [None]
  - RHABDOMYOLYSIS [None]
  - HEPATIC ENZYME INCREASED [None]
